FAERS Safety Report 7534692-5 (Version None)
Quarter: 2011Q2

REPORT INFORMATION
  Report Type: 
  Country: None (occurrence: None)
  Receive Date: 20110609
  Receipt Date: 20110510
  Transmission Date: 20111010
  Serious: Yes (Other)
  Sender: FDA-Public Use
  Company Number: PHHY2011NL48680

PATIENT

DRUGS (5)
  1. CALCICHEW-D3 [Concomitant]
     Dosage: UNK
  2. RISEDRONATE SODIUM [Concomitant]
     Dosage: UNK
  3. LISINOPRIL [Concomitant]
     Dosage: UNK
  4. DIPYRIDAMOLE [Concomitant]
     Dosage: UNK
  5. TERBINAFINE HCL [Suspect]
     Indication: ONYCHOMYCOSIS
     Dosage: 1 DF, QD
     Route: 048

REACTIONS (4)
  - INSOMNIA [None]
  - ASTHENIA [None]
  - HEADACHE [None]
  - DEAFNESS [None]
